FAERS Safety Report 18282236 (Version 1)
Quarter: 2020Q3

REPORT INFORMATION
  Report Type: Spontaneous
  Country: US (occurrence: US)
  Receive Date: 20200918
  Receipt Date: 20200918
  Transmission Date: 20201103
  Serious: Yes (Other)
  Sender: FDA-Public Use
  Company Number: US-TEVA-2020-US-1828854

PATIENT

DRUGS (6)
  1. TRAMADOL. [Suspect]
     Active Substance: TRAMADOL
     Route: 065
  2. VICODIN [Suspect]
     Active Substance: ACETAMINOPHEN\HYDROCODONE BITARTRATE
     Route: 065
  3. HYDROCODONE BITARTRATE AND ACETAMINOPHEN [Suspect]
     Active Substance: ACETAMINOPHEN\HYDROCODONE BITARTRATE
     Route: 065
  4. OXYCONTIN [Suspect]
     Active Substance: OXYCODONE HYDROCHLORIDE
     Route: 065
  5. OXYCODONE AND ACETAMINOPHEN [Suspect]
     Active Substance: ACETAMINOPHEN\OXYCODONE HYDROCHLORIDE
     Route: 065
  6. OXYCODONE [Suspect]
     Active Substance: OXYCODONE
     Dosage: FORM OF ADMIN: IMMEDIATE RELEASE TABLET
     Route: 065

REACTIONS (1)
  - Drug dependence [Unknown]
